FAERS Safety Report 4846472-X (Version None)
Quarter: 2005Q4

REPORT INFORMATION
  Report Type: 
  Country: None (occurrence: None)
  Receive Date: 20051206
  Receipt Date: 20051027
  Transmission Date: 20060501
  Serious: Yes (Other)
  Sender: FDA-Public Use
  Company Number: GBWYE095928OCT05

PATIENT
  Sex: Female

DRUGS (6)
  1. ENBREL [Suspect]
     Indication: RHEUMATOID ARTHRITIS
     Route: 058
     Dates: start: 20041101, end: 20051101
  2. PREDNISOLONE [Concomitant]
     Route: 065
  3. FRUSEMIDE [Concomitant]
     Route: 065
  4. LOSEC [Concomitant]
     Route: 065
  5. OXYBUTYNIN [Concomitant]
     Route: 065
  6. CO-CODAMOL [Concomitant]
     Route: 065

REACTIONS (2)
  - SCLERODERMA [None]
  - SYSTEMIC LUPUS ERYTHEMATOSUS RASH [None]
